FAERS Safety Report 23134725 (Version 2)
Quarter: 2024Q3

REPORT INFORMATION
  Report Type: Spontaneous
  Country: US (occurrence: US)
  Receive Date: 20231101
  Receipt Date: 20240917
  Transmission Date: 20241017
  Serious: No
  Sender: SANOFI AVENTIS
  Company Number: US-SA-SAC20231027001605

PATIENT
  Age: 62 Year
  Sex: Female

DRUGS (1)
  1. DUPIXENT [Suspect]
     Active Substance: DUPILUMAB
     Indication: Dermatitis atopic
     Dosage: UNK
     Route: 058
     Dates: start: 20150101

REACTIONS (8)
  - Eczema [Not Recovered/Not Resolved]
  - Periorbital irritation [Unknown]
  - Injection site discolouration [Unknown]
  - Eye disorder [Unknown]
  - Pruritus [Unknown]
  - Dry eye [Unknown]
  - Rash macular [Unknown]
  - Injection site swelling [Unknown]

NARRATIVE: CASE EVENT DATE: 20230101
